FAERS Safety Report 24401013 (Version 1)
Quarter: 2024Q4

REPORT INFORMATION
  Report Type: Report from Study
  Country: US (occurrence: US)
  Receive Date: 20241006
  Receipt Date: 20241006
  Transmission Date: 20250115
  Serious: Yes (Other)
  Sender: JOHNSON AND JOHNSON
  Company Number: US-JNJFOC-20241001422

PATIENT
  Age: 59 Year
  Sex: Female

DRUGS (1)
  1. SPRAVATO [Suspect]
     Active Substance: ESKETAMINE
     Indication: Depression
     Dosage: ^^84 MG, 2 TOTAL DOSES^^
     Dates: start: 20240924, end: 20240926

REACTIONS (2)
  - Anxiety [Unknown]
  - Dissociation [Unknown]

NARRATIVE: CASE EVENT DATE: 20240901
